FAERS Safety Report 23309370 (Version 1)
Quarter: 2023Q4

REPORT INFORMATION
  Report Type: Spontaneous
  Country: US (occurrence: US)
  Receive Date: 20231218
  Receipt Date: 20231218
  Transmission Date: 20240110
  Serious: Yes (Hospitalization)
  Sender: FDA-Public Use
  Company Number: US-TEVA-VS-3135914

PATIENT
  Age: 68 Year

DRUGS (1)
  1. ALLOPURINOL [Suspect]
     Active Substance: ALLOPURINOL
     Indication: Gouty arthritis
     Route: 065

REACTIONS (2)
  - Vasculitis necrotising [Recovering/Resolving]
  - Acute kidney injury [Recovering/Resolving]
